FAERS Safety Report 8139820-9 (Version None)
Quarter: 2012Q1

REPORT INFORMATION
  Report Type: 
  Country: None (occurrence: None)
  Receive Date: 20120215
  Receipt Date: 20120206
  Transmission Date: 20120608
  Serious: Yes (Other)
  Sender: FDA-Public Use
  Company Number: FR-ASTRAZENECA-2012SE09150

PATIENT
  Age: 20 Year
  Sex: Female

DRUGS (3)
  1. QUETIAPINE FUMARATE [Suspect]
     Indication: BIPOLAR I DISORDER
     Route: 048
  2. QUETIAPINE FUMARATE [Suspect]
     Route: 048
     Dates: end: 20120106
  3. MIRTAZAPINE [Concomitant]
     Indication: BIPOLAR I DISORDER

REACTIONS (2)
  - VISUAL ACUITY REDUCED [None]
  - PARKINSONISM [None]
